FAERS Safety Report 9166656 (Version 2)
Quarter: 2013Q2

REPORT INFORMATION
  Report Type: Spontaneous
  Country: US (occurrence: US)
  Receive Date: 20130315
  Receipt Date: 20130412
  Transmission Date: 20140414
  Serious: Yes (Hospitalization, Other)
  Sender: FDA-Public Use
  Company Number: US-GILEAD-2013-0071473

PATIENT
  Sex: Male

DRUGS (2)
  1. LETAIRIS [Suspect]
     Indication: PRODUCT USED FOR UNKNOWN INDICATION
     Dosage: 5 MG, QD
     Dates: start: 20090921
  2. ADCIRCA [Concomitant]
     Indication: PRODUCT USED FOR UNKNOWN INDICATION

REACTIONS (13)
  - Pulmonary arterial hypertension [Unknown]
  - Chronic obstructive pulmonary disease [Unknown]
  - Cardiac failure congestive [Unknown]
  - Pneumonia [Unknown]
  - Respiratory tract infection [Unknown]
  - Pulmonary congestion [Unknown]
  - Loss of consciousness [Unknown]
  - Respiratory distress [Unknown]
  - Fall [Unknown]
  - Syncope [Unknown]
  - Rib fracture [Unknown]
  - Dyspnoea [Unknown]
  - Knee arthroplasty [Unknown]
